FAERS Safety Report 6446271-1 (Version None)
Quarter: 2009Q4

REPORT INFORMATION
  Report Type: 
  Country: None (occurrence: None)
  Receive Date: 20091119
  Receipt Date: 20091110
  Transmission Date: 20100525
  Serious: Yes (Other)
  Sender: FDA-Public Use
  Company Number: FI-ROCHE-667722

PATIENT
  Sex: Male

DRUGS (4)
  1. TAMIFLU [Suspect]
     Indication: H1N1 INFLUENZA
     Route: 048
     Dates: start: 20091106, end: 20091106
  2. TAMIFLU [Suspect]
     Route: 048
     Dates: start: 20091107, end: 20091107
  3. BUVENTOL EASYHALER [Concomitant]
     Dosage: REPORTED AS BUVENTOL
  4. BECLOMET [Concomitant]

REACTIONS (1)
  - CONVULSION [None]
